FAERS Safety Report 25335686 (Version 2)
Quarter: 2025Q2

REPORT INFORMATION
  Report Type: Spontaneous
  Country: US (occurrence: US)
  Receive Date: 20250520
  Receipt Date: 20250620
  Transmission Date: 20250717
  Serious: No
  Sender: PFIZER
  Company Number: US-PFIZER INC-202500100932

PATIENT
  Age: 65 Year
  Sex: Female
  Weight: 157 kg

DRUGS (1)
  1. ESTROGENS, CONJUGATED [Suspect]
     Active Substance: ESTROGENS, CONJUGATED
     Dosage: APPLY 2 GRAMS AS DIRECTED 2 TIMES PER WEEK

REACTIONS (1)
  - Drug ineffective [Unknown]
